FAERS Safety Report 8563171-1 (Version None)
Quarter: 2012Q3

REPORT INFORMATION
  Report Type: 
  Country: None (occurrence: None)
  Receive Date: 20120802
  Receipt Date: 20120725
  Transmission Date: 20120928
  Serious: Yes (Other)
  Sender: FDA-Public Use
  Company Number: US-AMGEN-USASP2011004186

PATIENT
  Age: 67 Year
  Sex: Female
  Weight: 96.599 kg

DRUGS (4)
  1. SULFASALAZINE [Concomitant]
     Dosage: UNK
  2. ENBREL [Suspect]
     Dosage: 50 MG, QWK
     Dates: start: 20110104, end: 20110214
  3. METHOTREXATE [Concomitant]
     Indication: PSORIATIC ARTHROPATHY
     Dosage: 15 MG, QWK
     Dates: start: 20100101
  4. ENBREL [Suspect]
     Indication: PSORIATIC ARTHROPATHY
     Dosage: 50 MG, QWK
     Route: 058
     Dates: start: 20110401, end: 20110606

REACTIONS (3)
  - VULVOVAGINAL MYCOTIC INFECTION [None]
  - DIARRHOEA [None]
  - UPPER RESPIRATORY TRACT INFECTION [None]
